FAERS Safety Report 4779413-4 (Version None)
Quarter: 2005Q3

REPORT INFORMATION
  Report Type: 
  Country: None (occurrence: None)
  Receive Date: 20050923
  Receipt Date: 20050909
  Transmission Date: 20060218
  Serious: Yes (Hospitalization)
  Sender: FDA-Public Use
  Company Number: 430083K05USA

PATIENT
  Age: 44 Year
  Sex: Female
  Weight: 90.7194 kg

DRUGS (27)
  1. NOVANTRONE [Suspect]
     Dosage: SEE IMAGE
     Route: 042
     Dates: start: 20001017, end: 20010701
  2. NOVANTRONE [Suspect]
     Dosage: SEE IMAGE
     Route: 042
     Dates: start: 20011001, end: 20050401
  3. REBIF [Concomitant]
  4. PREVACID [Concomitant]
  5. EFFEXOR [Concomitant]
  6. NEURONTIN [Concomitant]
  7. TOPROL-XL [Concomitant]
  8. VALIUM [Concomitant]
  9. IMDUR [Concomitant]
  10. NITROSTAT [Concomitant]
  11. PRAVACHOL [Concomitant]
  12. ZETIA [Concomitant]
  13. FOLIC ACID [Concomitant]
  14. DETROL LA [Concomitant]
  15. DEMADEX [Concomitant]
  16. PLAVIX [Concomitant]
  17. ROBAXIN (METHOCARBOMOL) [Concomitant]
  18. VITAMIN E (TOCOPHEROL /00110501/) [Concomitant]
  19. CALCIUM C (ASCORBIC ACID) [Concomitant]
  20. MULTIVITAMIN [Concomitant]
  21. FENTANYL (FENTANYL /00174601/) [Concomitant]
  22. DILANTIN (PHENYTOIN /00017401/) [Concomitant]
  23. MOBIC [Concomitant]
  24. LORTAB [Concomitant]
  25. MORPHINE SULFATE EXTENDED RELEASE (MORPHINE SULFATE) [Concomitant]
  26. MORPHINE SULFATE INTERMEDIATE RLEEASE (MORPHINE SULFATE) [Concomitant]
  27. ESTRACE (ESTRADIOL  /00045401/) [Concomitant]

REACTIONS (7)
  - CHEST PAIN [None]
  - CONDITION AGGRAVATED [None]
  - DIZZINESS [None]
  - DYSPNOEA [None]
  - EJECTION FRACTION DECREASED [None]
  - MULTIPLE SCLEROSIS [None]
  - PRURITUS [None]
